FAERS Safety Report 7397035-6 (Version None)
Quarter: 2011Q2

REPORT INFORMATION
  Report Type: 
  Country: None (occurrence: None)
  Receive Date: 20110406
  Receipt Date: 20110404
  Transmission Date: 20111010
  Serious: Yes (Other)
  Sender: FDA-Public Use
  Company Number: A0921275A

PATIENT
  Age: 49 Year
  Sex: Female

DRUGS (5)
  1. LAMICTAL [Concomitant]
  2. NICODERM CQ [Suspect]
     Indication: SMOKING CESSATION THERAPY
     Route: 062
  3. TRAZODONE HCL [Concomitant]
  4. KLONOPIN [Concomitant]
  5. LITHIUM [Concomitant]

REACTIONS (9)
  - NICOTINE DEPENDENCE [None]
  - DEPRESSION [None]
  - IRRITABILITY [None]
  - SUICIDAL IDEATION [None]
  - SOCIAL AVOIDANT BEHAVIOUR [None]
  - CONDITION AGGRAVATED [None]
  - THINKING ABNORMAL [None]
  - AGITATION [None]
  - INSOMNIA [None]
